FAERS Safety Report 10010829 (Version 2)
Quarter: 2014Q1

REPORT INFORMATION
  Report Type: Spontaneous
  Country: DE (occurrence: None)
  Receive Date: 20140311
  Receipt Date: 20140313
  Transmission Date: 20141002
  Serious: Yes (Other)
  Sender: FDA-Public Use
  Company Number: VAL_03024_2014

PATIENT
  Sex: Male

DRUGS (2)
  1. METOPROLOL [Suspect]
     Indication: PRODUCT USED FOR UNKNOWN INDICATION
     Dosage: (DF)
  2. EXFORGE HCT [Suspect]
     Indication: PRODUCT USED FOR UNKNOWN INDICATION
     Dosage: (1 DF(160MG VALS/5MG AMLO/12.5MG HCT))
     Dates: start: 20140301

REACTIONS (2)
  - Blood pressure inadequately controlled [None]
  - Hypertension [None]
